FAERS Safety Report 5406304-8 (Version None)
Quarter: 2007Q3

REPORT INFORMATION
  Report Type: 
  Country: None (occurrence: None)
  Receive Date: 20070806
  Receipt Date: 20070727
  Transmission Date: 20080115
  Serious: Yes (Hospitalization)
  Sender: FDA-Public Use
  Company Number: JP-BRISTOL-MYERS SQUIBB COMPANY-13867544

PATIENT
  Age: 75 Year
  Sex: Male

DRUGS (2)
  1. GATIFLOXACIN [Suspect]
     Indication: CYSTITIS
     Route: 048
     Dates: start: 20070707, end: 20070726
  2. LEVOFLOXACIN [Concomitant]
     Route: 048
     Dates: start: 20070625, end: 20070701

REACTIONS (1)
  - INTERSTITIAL LUNG DISEASE [None]
